FAERS Safety Report 6819457-1 (Version None)
Quarter: 2010Q2

REPORT INFORMATION
  Report Type: 
  Country: None (occurrence: None)
  Receive Date: 20100630
  Receipt Date: 20100625
  Transmission Date: 20101027
  Serious: Yes (Death, Hospitalization)
  Sender: FDA-Public Use
  Company Number: 1000008327

PATIENT
  Age: 72 Year
  Sex: Female
  Weight: 60.2 kg

DRUGS (2)
  1. NEBIVOLOL HCL [Suspect]
     Indication: HYPERTENSION
     Dosage: 40 MG, ORAL
     Route: 048
     Dates: start: 20090604, end: 20090811
  2. LISINOPRIL [Suspect]
     Indication: HYPERTENSION
     Dosage: 10 MG (10 MG, 1 IN 1 D), ORAL
     Route: 048
     Dates: start: 20090507, end: 20090811

REACTIONS (14)
  - BASAL GANGLIA HAEMORRHAGE [None]
  - BLOOD CREATINE PHOSPHOKINASE INCREASED [None]
  - BLOOD CREATINE PHOSPHOKINASE MB INCREASED [None]
  - BLOOD PRESSURE INCREASED [None]
  - BRAIN MIDLINE SHIFT [None]
  - BRAIN OEDEMA [None]
  - ENCEPHALOPATHY [None]
  - HEART RATE INCREASED [None]
  - HYPERSOMNIA [None]
  - MIOSIS [None]
  - PUPILLARY REFLEX IMPAIRED [None]
  - RESPIRATORY RATE DECREASED [None]
  - TROPONIN INCREASED [None]
  - UNRESPONSIVE TO STIMULI [None]
